FAERS Safety Report 14284874 (Version 2)
Quarter: 2018Q1

REPORT INFORMATION
  Report Type: Spontaneous
  Country: US (occurrence: US)
  Receive Date: 20171214
  Receipt Date: 20180126
  Transmission Date: 20180509
  Serious: No
  Sender: FDA-Public Use
  Company Number: US-009507513-1711USA006542

PATIENT
  Age: 32 Year
  Sex: Female
  Weight: 87.98 kg

DRUGS (5)
  1. COZAAR [Concomitant]
     Active Substance: LOSARTAN POTASSIUM
     Dosage: UNK
  2. LASIX [Concomitant]
     Active Substance: FUROSEMIDE
     Dosage: UNK
  3. NEXPLANON [Suspect]
     Active Substance: ETONOGESTREL
     Indication: CONTRACEPTION
     Dosage: 1 ROD, ONCE FOR 3 YEARS, IN THE SULCUS BICIPITALIS MEDIALIS IN HER LEFT ARM
     Route: 059
     Dates: start: 20171108, end: 20171108
  4. NEXIUM [Concomitant]
     Active Substance: ESOMEPRAZOLE MAGNESIUM
     Dosage: UNK
  5. POTASSIUM CHLORIDE. [Concomitant]
     Active Substance: POTASSIUM CHLORIDE
     Dosage: UNK

REACTIONS (6)
  - Complication of device insertion [Recovered/Resolved]
  - Device deployment issue [Recovered/Resolved]
  - Implant site pain [Not Recovered/Not Resolved]
  - Device difficult to use [Recovered/Resolved]
  - Wound [Unknown]
  - Product quality issue [Unknown]

NARRATIVE: CASE EVENT DATE: 20171108
